FAERS Safety Report 16007509 (Version 7)
Quarter: 2019Q3

REPORT INFORMATION
  Report Type: Spontaneous
  Country: CA (occurrence: CA)
  Receive Date: 20190226
  Receipt Date: 20190816
  Transmission Date: 20191004
  Serious: Yes (Death, Hospitalization, Other)
  Sender: FDA-Public Use
  Company Number: CA-PFIZER INC-2019017629

PATIENT
  Age: 72 Year
  Sex: Female

DRUGS (17)
  1. SYNTHROID [Concomitant]
     Active Substance: LEVOTHYROXINE SODIUM
     Dosage: 100 UG, 1X/DAY
     Route: 048
  2. PREDNISONE. [Concomitant]
     Active Substance: PREDNISONE
     Dosage: 5 MG, 2X/DAY
     Route: 048
  3. HEPARIN [Concomitant]
     Active Substance: HEPARIN SODIUM
     Dosage: UNK, 2X/DAY (5000 U/0.5ML,)
     Route: 058
  4. POLYSTYRENE SULFONATE CA [Concomitant]
     Dosage: 15 G, 1X/DAY
     Route: 048
  5. ATROVENT [Concomitant]
     Active Substance: IPRATROPIUM BROMIDE
     Indication: DYSPNOEA
     Dosage: UNK UNK, AS NEEDED (4 PUFFS IN 4 TIMES DAILY AS NEEDED )
  6. REMERON [Concomitant]
     Active Substance: MIRTAZAPINE
     Dosage: 15 MG, 1X/DAY (15 MG, BED TIME)
     Route: 048
  7. ASPIRIN 81 [Concomitant]
     Active Substance: ASPIRIN
     Dosage: 81 MG, 1X/DAY
     Route: 048
  8. DIOVOL [Concomitant]
     Indication: DYSPEPSIA
     Dosage: 30 ML, 4X/DAY (30 ML, EVERY 6 HOURS)
  9. MAXERAN [Concomitant]
     Active Substance: METOCLOPRAMIDE HYDROCHLORIDE
     Dosage: 10 MG, 4X/DAY (10 MG, EVERY 6 HOURS, AS NEEDED)
     Route: 048
  10. SERAX [Concomitant]
     Active Substance: OXAZEPAM
     Indication: INSOMNIA
     Dosage: 15 MG, AS NEEDED (BEDTIME AS NEEDED)
     Route: 048
  11. INLYTA [Suspect]
     Active Substance: AXITINIB
     Dosage: 5 MG CYCLIC (2X/DAY)
     Route: 048
     Dates: start: 20190125, end: 2019
  12. TYLENOL 8HR [Concomitant]
     Active Substance: ACETAMINOPHEN
     Indication: HEADACHE
     Dosage: 650 MG, AS NEEDED (650 MG, EVERY 4 HRS, AS NEEDED)
     Route: 048
  13. PANTOLOC [Concomitant]
     Active Substance: PANTOPRAZOLE SODIUM
     Dosage: 40 MG, 1X/DAY
  14. ZOPICLONE [Concomitant]
     Active Substance: ZOPICLONE
     Dosage: 5 MG, AS NEEDED (AT BED TIME)
     Route: 048
  15. BETALOC [Concomitant]
     Active Substance: METOPROLOL TARTRATE
     Dosage: 12.5 MG, 2X/DAY
     Route: 048
  16. LORAZEPAM. [Concomitant]
     Active Substance: LORAZEPAM
     Indication: ANXIETY
     Dosage: UNK UNK, AS NEEDED  (0.5-1MG PO EVERY 8 HOURS AS NEEDED)
     Route: 048
  17. LORAZEPAM. [Concomitant]
     Active Substance: LORAZEPAM
     Indication: SLEEP DISORDER
     Dosage: UNK UNK, AS NEEDED (0.5-1MG  EVERY 8 HOURS AS NEEDED)
     Route: 060

REACTIONS (5)
  - Haemorrhage [Unknown]
  - Atrial flutter [Recovered/Resolved]
  - Neoplasm progression [Fatal]
  - Cardiac disorder [Unknown]
  - Anaemia [Unknown]

NARRATIVE: CASE EVENT DATE: 2019
